FAERS Safety Report 12891622 (Version 2)
Quarter: 2016Q4

REPORT INFORMATION
  Report Type: Spontaneous
  Country: FR (occurrence: FR)
  Receive Date: 20161028
  Receipt Date: 20161102
  Transmission Date: 20170207
  Serious: Yes (Other)
  Sender: FDA-Public Use
  Company Number: FR-009507513-1610FRA013955

PATIENT
  Age: 46 Year
  Sex: Female

DRUGS (2)
  1. ZENTEL [Suspect]
     Active Substance: ALBENDAZOLE
     Indication: CUTANEOUS LARVA MIGRANS
     Dosage: 800 MG, 1 PER DAY
     Route: 048
     Dates: start: 20160825, end: 20160827
  2. STROMECTOL [Suspect]
     Active Substance: IVERMECTIN
     Indication: CUTANEOUS LARVA MIGRANS
     Dosage: 4 DF, 1 SINGLE INTAKE
     Route: 048
     Dates: start: 20160823, end: 20160823

REACTIONS (3)
  - Alopecia [Not Recovered/Not Resolved]
  - Hypotrichosis [Not Recovered/Not Resolved]
  - Madarosis [Not Recovered/Not Resolved]

NARRATIVE: CASE EVENT DATE: 20160914
